FAERS Safety Report 7610742-2 (Version None)
Quarter: 2011Q3

REPORT INFORMATION
  Report Type: 
  Country: None (occurrence: None)
  Receive Date: 20110715
  Receipt Date: 20110708
  Transmission Date: 20111222
  Serious: Yes (Hospitalization, Other)
  Sender: FDA-Public Use
  Company Number: US-ELI_LILLY_AND_COMPANY-US201106001367

PATIENT
  Sex: Male
  Weight: 81.633 kg

DRUGS (6)
  1. AMARYL [Concomitant]
     Dosage: 4 MG, BID
     Route: 048
  2. ACE INHIBITORS [Concomitant]
  3. WELCHOL [Concomitant]
     Dosage: 32.5 MG, QD
     Route: 048
  4. BYETTA [Suspect]
     Indication: TYPE 2 DIABETES MELLITUS
     Dosage: 10 UG, BID
     Route: 058
     Dates: start: 20070101, end: 20110501
  5. METFORMIN HCL [Concomitant]
     Dosage: 1000 MG, BID
     Route: 048
  6. ZOCOR [Concomitant]
     Dosage: 80 MG, QD
     Route: 048

REACTIONS (2)
  - PANCREATITIS [None]
  - WEIGHT DECREASED [None]
